FAERS Safety Report 15347977 (Version 1)
Quarter: 2018Q3

REPORT INFORMATION
  Report Type: Spontaneous
  Country: US (occurrence: US)
  Receive Date: 20180904
  Receipt Date: 20180904
  Transmission Date: 20181010
  Serious: No
  Sender: FDA-Public Use
  Company Number: US-SUNOVION-2018SUN003299

PATIENT
  Sex: Female

DRUGS (2)
  1. PERPHENAZINE. [Suspect]
     Active Substance: PERPHENAZINE
     Dosage: 4 MG, ONE TABLET IN THE MORNING AND TWO IN THE EVENING
     Route: 065
  2. LATUDA [Suspect]
     Active Substance: LURASIDONE HYDROCHLORIDE
     Indication: BIPOLAR DISORDER
     Dosage: 80 MG(TWO TABLETS), QD AT BEDTIME
     Route: 048

REACTIONS (5)
  - Restlessness [Unknown]
  - Somnolence [Unknown]
  - Vision blurred [Unknown]
  - Tic [Unknown]
  - Restless legs syndrome [Unknown]
